FAERS Safety Report 10593944 (Version 2)
Quarter: 2015Q1

REPORT INFORMATION
  Report Type: Report from Study
  Country: FI (occurrence: FI)
  Receive Date: 20141119
  Receipt Date: 20150205
  Transmission Date: 20150720
  Serious: Yes (Other)
  Sender: FDA-Public Use
  Company Number: FI-RB PHARMACEUTICALS LIMITED-RB-73064-2014

PATIENT
  Age: 22 Year
  Sex: Female

DRUGS (14)
  1. SUBOXONE [Suspect]
     Active Substance: BUPRENORPHINE HYDROCHLORIDE\NALOXONE HYDROCHLORIDE
     Indication: DRUG DEPENDENCE
     Dosage: UNK
     Route: 051
  2. SUBUTEX [Suspect]
     Active Substance: BUPRENORPHINE HYDROCHLORIDE
     Indication: EUPHORIC MOOD
     Dosage: CURRENTLY USING SEVERAL TIMES A WEEK
     Route: 051
  3. ECSTASY/ MDMA [Suspect]
     Active Substance: METHYLENEDIOXYMETHAMPHETAMINE
     Indication: PRODUCT USED FOR UNKNOWN INDICATION
     Dosage: LESS THAN ONCE A WEEK
     Route: 051
  4. SUBUTEX [Suspect]
     Active Substance: BUPRENORPHINE HYDROCHLORIDE
     Indication: DRUG DEPENDENCE
  5. MORPHINE/ OPIUM [Suspect]
     Active Substance: MORPHINE
     Indication: PRODUCT USED FOR UNKNOWN INDICATION
     Dosage: LESS THAN ONCE A WEEK
     Route: 048
  6. ECSTASY/ MDMA [Suspect]
     Active Substance: METHYLENEDIOXYMETHAMPHETAMINE
     Dosage: LESS THAN ONCE A WEEK
     Route: 048
  7. METHADONE [Suspect]
     Active Substance: METHADONE HYDROCHLORIDE
     Indication: DRUG DEPENDENCE
     Dosage: LESS THAN ONCE A WEEK
     Route: 048
  8. CODEINE [Suspect]
     Active Substance: CODEINE
     Indication: DRUG DEPENDENCE
     Dosage: LESS THAN ONCE A WEEK
     Route: 048
  9. AMPHETAMINE/ SPEED [Suspect]
     Active Substance: AMPHETAMINE
     Indication: PRODUCT USED FOR UNKNOWN INDICATION
     Dosage: CURRENTLY USING SEVERAL TIMES A WEEK
     Route: 051
  10. BENZOS (BENZODIAZEPINES) [Suspect]
     Active Substance: BENZODIAZEPINE
     Indication: PRODUCT USED FOR UNKNOWN INDICATION
     Dosage: CURRENTLY USING SEVERAL TIMES A WEEK
     Route: 048
  11. BENZOS (BENZODIAZEPINES) [Suspect]
     Active Substance: BENZODIAZEPINE
     Dosage: CURRENTLY USING SEVERAL TIMES A WEEK
     Route: 051
  12. SUBOXONE [Suspect]
     Active Substance: BUPRENORPHINE HYDROCHLORIDE\NALOXONE HYDROCHLORIDE
     Indication: EUPHORIC MOOD
  13. MARIJUANA/ THC/ HEMP/HASH [Suspect]
     Active Substance: CANNABIS SATIVA SUBSP. INDICA TOP
     Indication: PRODUCT USED FOR UNKNOWN INDICATION
     Dosage: LESS THAN ONCE A WEEK
     Route: 055
  14. MARZINE [Suspect]
     Active Substance: CYCLIZINE HYDROCHLORIDE
     Indication: PRODUCT USED FOR UNKNOWN INDICATION
     Dosage: UNK
     Route: 065

REACTIONS (5)
  - Hepatitis C [Unknown]
  - Intentional product misuse [Not Recovered/Not Resolved]
  - Substance abuse [Not Recovered/Not Resolved]
  - General physical health deterioration [Not Recovered/Not Resolved]
  - Mental impairment [Not Recovered/Not Resolved]
